FAERS Safety Report 7234387-1 (Version None)
Quarter: 2011Q1

REPORT INFORMATION
  Report Type: 
  Country: None (occurrence: None)
  Receive Date: 20110119
  Receipt Date: 20110110
  Transmission Date: 20110831
  Serious: Yes (Hospitalization, Other)
  Sender: FDA-Public Use
  Company Number: DE-JNJCH-2010026328

PATIENT
  Sex: Female
  Weight: 58 kg

DRUGS (1)
  1. ROGAINE [Suspect]
     Indication: ALOPECIA
     Dosage: TEXT:ONE ML BID
     Route: 061
     Dates: start: 20080101, end: 20100101

REACTIONS (2)
  - CATHETERISATION CARDIAC [None]
  - TACHYCARDIA [None]
